FAERS Safety Report 24065314 (Version 5)
Quarter: 2024Q3

REPORT INFORMATION
  Report Type: Report from Study
  Country: US (occurrence: US)
  Receive Date: 20240709
  Receipt Date: 20240904
  Transmission Date: 20241017
  Serious: No
  Sender: ALEXION PHARMACEUTICALS
  Company Number: US-AstraZeneca-CH-00658632A

PATIENT
  Sex: Male

DRUGS (1)
  1. ULTOMIRIS [Suspect]
     Active Substance: RAVULIZUMAB-CWVZ
     Indication: Product used for unknown indication
     Dosage: UNK, EVERY 8 WEEKS
     Route: 042

REACTIONS (8)
  - Condition aggravated [Unknown]
  - Dysphagia [Unknown]
  - Mastication disorder [Unknown]
  - Muscular weakness [Unknown]
  - Quality of life decreased [Unknown]
  - Dysarthria [Unknown]
  - Drug ineffective [Unknown]
  - Back pain [Unknown]

NARRATIVE: CASE EVENT DATE: 20240601
